FAERS Safety Report 25281455 (Version 3)
Quarter: 2025Q3

REPORT INFORMATION
  Report Type: Report from Study
  Country: US (occurrence: US)
  Receive Date: 20250508
  Receipt Date: 20250809
  Transmission Date: 20251021
  Serious: Yes (Other)
  Sender: ALEXION PHARMACEUTICALS
  Company Number: US-AstraZeneca-CH-00863902A

PATIENT
  Sex: Female
  Weight: 103 kg

DRUGS (1)
  1. BENRALIZUMAB [Suspect]
     Active Substance: BENRALIZUMAB
     Indication: Asthma
     Dosage: 30 MILLIGRAM PER MILLILITRE, Q4W
     Dates: start: 20250408

REACTIONS (7)
  - Hypersensitivity [Recovering/Resolving]
  - Rash [Unknown]
  - Erythema [Unknown]
  - Conjunctivitis [Unknown]
  - Eye pruritus [Unknown]
  - Blindness unilateral [Unknown]
  - Paraesthesia [Unknown]
